FAERS Safety Report 19677015 (Version 1)
Quarter: 2021Q3

REPORT INFORMATION
  Report Type: Other
  Country: JP (occurrence: JP)
  Receive Date: 20210810
  Receipt Date: 20210810
  Transmission Date: 20211014
  Serious: Yes (Hospitalization, Other)
  Sender: FDA-Public Use
  Company Number: JP-INNOGENIX, LLC-2114817

PATIENT
  Age: 70 Year
  Sex: Male

DRUGS (5)
  1. TELMISARTAN. [Concomitant]
     Active Substance: TELMISARTAN
     Route: 065
  2. DIGOXIN. [Suspect]
     Active Substance: DIGOXIN
     Route: 065
  3. CARVEDILOL. [Suspect]
     Active Substance: CARVEDILOL
     Route: 065
  4. WARFARIN [Concomitant]
     Active Substance: WARFARIN
     Route: 065
  5. PROPRANOLOL HYDROCHLORIDE. [Suspect]
     Active Substance: PROPRANOLOL HYDROCHLORIDE
     Indication: VENTRICULAR EXTRASYSTOLES
     Route: 065

REACTIONS (2)
  - Condition aggravated [Recovered/Resolved]
  - Cardiac failure [Recovered/Resolved]
